FAERS Safety Report 8135737-4 (Version None)
Quarter: 2012Q1

REPORT INFORMATION
  Report Type: 
  Country: None (occurrence: None)
  Receive Date: 20120210
  Receipt Date: 20120125
  Transmission Date: 20120608
  Serious: Yes (Death)
  Sender: FDA-Public Use
  Company Number: OPER20120048

PATIENT
  Age: 28 Year
  Sex: Male

DRUGS (5)
  1. HYDROCODONE BITARTRATE + ACETAMINOPHEN [Suspect]
     Indication: DRUG ABUSE
  2. OPANA ER [Suspect]
     Indication: DRUG ABUSE
  3. KETAMINE HCL [Suspect]
     Indication: DRUG ABUSE
  4. CLONIDINE HCL [Suspect]
     Indication: DRUG ABUSE
  5. GABAPENTIN [Suspect]
     Indication: DRUG ABUSE

REACTIONS (1)
  - INTENTIONAL DRUG MISUSE [None]
